FAERS Safety Report 5298833-5 (Version None)
Quarter: 2007Q2

REPORT INFORMATION
  Report Type: 
  Country: None (occurrence: None)
  Receive Date: 20070417
  Receipt Date: 20070404
  Transmission Date: 20071010
  Serious: Yes (Life-Threatening)
  Sender: FDA-Public Use
  Company Number: CA-BAYER-200711915GDS

PATIENT
  Age: 79 Year
  Sex: Female
  Weight: 68 kg

DRUGS (3)
  1. AVELOX [Suspect]
     Indication: BRONCHITIS
     Dosage: TOTAL DAILY DOSE: 400 MG  UNIT DOSE: 400 MG
     Route: 048
     Dates: start: 20070228, end: 20070309
  2. DIAMICRON [Concomitant]
     Indication: DIABETES MELLITUS NON-INSULIN-DEPENDENT
     Dosage: UNIT DOSE: 80 MG
     Route: 048
     Dates: start: 20070111, end: 20070301
  3. DIAMICRON [Concomitant]
     Dosage: UNIT DOSE: 80 MG
     Route: 048
     Dates: start: 20070301

REACTIONS (1)
  - HYPOGLYCAEMIA [None]
